FAERS Safety Report 17137556 (Version 2)
Quarter: 2019Q4

REPORT INFORMATION
  Report Type: Spontaneous
  Country: US (occurrence: US)
  Receive Date: 20191210
  Receipt Date: 20191213
  Transmission Date: 20200122
  Serious: No
  Sender: FDA-Public Use
  Company Number: US-JNJFOC-20191212962

PATIENT
  Age: 70 Year
  Sex: Female
  Weight: 63.11 kg

DRUGS (2)
  1. ZYRTEC [Suspect]
     Active Substance: CETIRIZINE HYDROCHLORIDE
     Indication: PRODUCT USED FOR UNKNOWN INDICATION
     Route: 065
  2. FIRDAPSE [Suspect]
     Active Substance: AMIFAMPRIDINE
     Indication: MYASTHENIC SYNDROME
     Route: 048
     Dates: start: 20191101

REACTIONS (2)
  - Nausea [Unknown]
  - Dizziness [Not Recovered/Not Resolved]

NARRATIVE: CASE EVENT DATE: 201911
